FAERS Safety Report 6262502-5 (Version None)
Quarter: 2009Q3

REPORT INFORMATION
  Report Type: 
  Country: None (occurrence: None)
  Receive Date: 20090709
  Receipt Date: 20090619
  Transmission Date: 20100115
  Serious: Yes (Hospitalization)
  Sender: FDA-Public Use
  Company Number: PHHO2009DE07970

PATIENT
  Sex: Female

DRUGS (19)
  1. CYCLOSPORINE [Suspect]
     Indication: RENAL TRANSPLANT
     Dosage: 150 MG, BID
     Route: 048
     Dates: start: 20031227, end: 20040218
  2. CYCLOSPORINE [Suspect]
     Dosage: 75 MG, QD
     Route: 048
     Dates: start: 20090219
  3. CYCLOSPORINE [Suspect]
     Dosage: 62.5 MG, BID
     Route: 048
  4. DACLIZUMAB [Suspect]
     Indication: RENAL TRANSPLANT
     Dosage: 140 MG, QD
     Route: 042
     Dates: start: 20031227
  5. DACLIZUMAB [Suspect]
     Dosage: 70 MG/EVERY TWO WEEKS
     Route: 042
     Dates: start: 20040112, end: 20040224
  6. MYCOPHENOLATE MOFETIL [Suspect]
     Indication: RENAL TRANSPLANT
     Dosage: 500 MG, BID
     Route: 048
     Dates: start: 20031227
  7. MYCOPHENOLATE MOFETIL [Suspect]
     Dosage: 750 MG, BID
     Route: 048
     Dates: start: 20040312, end: 20040614
  8. URBASON [Suspect]
     Indication: RENAL TRANSPLANT
     Dosage: 8 MG, BID
     Route: 048
     Dates: start: 20030117
  9. URBASON [Suspect]
     Dosage: 500 MG, QD
     Route: 042
     Dates: start: 20031227
  10. URBASON [Suspect]
     Dosage: 10 MG, BID
     Route: 048
     Dates: start: 20031230
  11. URBASON [Suspect]
     Dosage: 8 MG, QD
     Route: 048
  12. BELOC-ZOK [Concomitant]
  13. VESDIL [Concomitant]
  14. NORVASC [Concomitant]
  15. CYNT [Concomitant]
  16. VALCYTE [Concomitant]
  17. PRAVASTATIN [Concomitant]
  18. ESOMEPRAZOLE MAGNESIUM [Concomitant]
  19. RAMIPRIL [Concomitant]

REACTIONS (14)
  - CYTOMEGALOVIRUS INFECTION [None]
  - DEHYDRATION [None]
  - ENTEROBACTER SEPSIS [None]
  - GRAFT DYSFUNCTION [None]
  - INCISIONAL DRAINAGE [None]
  - KIDNEY ANASTOMOSIS [None]
  - LYMPHOCELE [None]
  - METABOLIC ACIDOSIS [None]
  - NEPHRECTOMY [None]
  - PAIN [None]
  - RENAL FAILURE ACUTE [None]
  - RENAL TUBULAR DISORDER [None]
  - URETERECTOMY [None]
  - URETERIC STENOSIS [None]
